FAERS Safety Report 5530128-4 (Version None)
Quarter: 2007Q4

REPORT INFORMATION
  Report Type: 
  Country: None (occurrence: None)
  Receive Date: 20071130
  Receipt Date: 20071122
  Transmission Date: 20080405
  Serious: Yes (Other)
  Sender: FDA-Public Use
  Company Number: PHBS2007JP19121

PATIENT
  Age: 8 Year
  Sex: Male

DRUGS (1)
  1. ZADITEN [Suspect]
     Indication: ECZEMA
     Dosage: UNK, UNK
     Route: 048
     Dates: start: 20071029

REACTIONS (1)
  - CONVULSION [None]
